FAERS Safety Report 19892933 (Version 1)
Quarter: 2021Q3

REPORT INFORMATION
  Report Type: Spontaneous
  Country: US (occurrence: US)
  Receive Date: 20210929
  Receipt Date: 20210929
  Transmission Date: 20211014
  Serious: No
  Sender: FDA-Public Use
  Company Number: US-TEVA-2021-US-1956172

PATIENT
  Sex: Male

DRUGS (1)
  1. PENICILLIN V POTASSIUM. [Suspect]
     Active Substance: PENICILLIN V POTASSIUM
     Indication: PRODUCT USED FOR UNKNOWN INDICATION
     Dosage: 250 MG/5 ML
     Route: 048
     Dates: start: 202109

REACTIONS (2)
  - Crying [Unknown]
  - Adverse event [Unknown]

NARRATIVE: CASE EVENT DATE: 202109
